FAERS Safety Report 9931140 (Version 2)
Quarter: 2014Q1

REPORT INFORMATION
  Report Type: Spontaneous
  Country: KR (occurrence: KR)
  Receive Date: 20140227
  Receipt Date: 20140320
  Transmission Date: 20141002
  Serious: Yes (Hospitalization)
  Sender: FDA-Public Use
  Company Number: PHHY2014KR023382

PATIENT
  Age: 49 Year
  Sex: Male

DRUGS (6)
  1. CICLOSPORIN [Suspect]
     Indication: IMMUNOSUPPRESSION
  2. PREDNISOLONE [Suspect]
     Indication: IMMUNOSUPPRESSION
  3. AZATHIOPRINE [Suspect]
     Indication: IMMUNOSUPPRESSION
  4. FK 506 [Concomitant]
     Dosage: 6 MG, PER DAY
  5. MYCOPHENOLATE [Concomitant]
     Dosage: 750 MG,PER DAY
  6. MYCOPHENOLATE [Concomitant]

REACTIONS (12)
  - Transplant rejection [Recovered/Resolved]
  - Blood creatinine increased [Recovered/Resolved]
  - Blood pressure decreased [Unknown]
  - Glomerulosclerosis [Unknown]
  - Renal impairment [Unknown]
  - Protein urine present [Unknown]
  - Glomerulonephritis [Unknown]
  - Glomerular filtration rate abnormal [Unknown]
  - Heart rate increased [Unknown]
  - Blood urea increased [Unknown]
  - Haemoglobin decreased [Unknown]
  - Tubulointerstitial nephritis [Unknown]
